FAERS Safety Report 4386715-2 (Version None)
Quarter: 2004Q2

REPORT INFORMATION
  Report Type: 
  Country: None (occurrence: None)
  Receive Date: 20040607
  Receipt Date: 20030512
  Transmission Date: 20050107
  Serious: Yes (Disabling)
  Sender: FDA-Public Use
  Company Number: 329530

PATIENT
  Age: 28 Year
  Sex: Female

DRUGS (2)
  1. ACCUTANE [Suspect]
     Indication: ACNE CYSTIC
     Dosage: 40 MG 2 PER DAY ORAL
     Route: 048
     Dates: start: 19920615, end: 19930615
  2. ORTHO-CEPT (DESOGESTREL/ETHINYL ESTRADIOL) [Concomitant]

REACTIONS (7)
  - ASTHENIA [None]
  - DRY SKIN [None]
  - FIBROMYALGIA [None]
  - KERATOCONJUNCTIVITIS SICCA [None]
  - MUSCULOSKELETAL STIFFNESS [None]
  - NASAL DRYNESS [None]
  - PAIN IN EXTREMITY [None]
